FAERS Safety Report 20321557 (Version 1)
Quarter: 2022Q1

REPORT INFORMATION
  Report Type: Spontaneous
  Country: US (occurrence: US)
  Receive Date: 20220111
  Receipt Date: 20220111
  Transmission Date: 20220424
  Serious: No
  Sender: FDA-Public Use
  Company Number: US-SUN PHARMACEUTICAL INDUSTRIES LTD-2021R1-287024

PATIENT
  Sex: Female

DRUGS (1)
  1. LEVULAN KERASTICK [Suspect]
     Active Substance: AMINOLEVULINIC ACID HYDROCHLORIDE
     Indication: Actinic keratosis
     Dosage: TO BE USED WITH BLU-U BLUE LIGHT PHOTODYNAMIC THERAPY ILLUMINATOR (LEVULAN PDT) AT PRESCRIBER OFF
     Route: 065

REACTIONS (2)
  - Erythema [Unknown]
  - Pain [Unknown]
